FAERS Safety Report 13009997 (Version 2)
Quarter: 2016Q4

REPORT INFORMATION
  Report Type: Report from Study
  Country: BR (occurrence: BR)
  Receive Date: 20161208
  Receipt Date: 20161221
  Transmission Date: 20170207
  Serious: Yes (Hospitalization)
  Sender: FDA-Public Use
  Company Number: PHHY2016BR168613

PATIENT
  Age: 87 Year
  Sex: Female
  Weight: 57 kg

DRUGS (4)
  1. ACERTIL [Concomitant]
     Active Substance: PERINDOPRIL ARGININE
     Indication: DEPRESSION
     Dosage: 1 DF, QD
     Route: 048
     Dates: start: 201605
  2. DEPURA [Concomitant]
     Active Substance: CHOLECALCIFEROL
     Indication: PRODUCT USED FOR UNKNOWN INDICATION
     Dosage: 2 DRP, QD
     Route: 048
     Dates: start: 201602
  3. DIOVAN HCT [Suspect]
     Active Substance: HYDROCHLOROTHIAZIDE\VALSARTAN
     Indication: HYPERTENSION
     Dosage: 1 DF (HYDROCHLOROTHIAZIDE 12.5 MG, VALSARTAN 160 MG), QD (IN MORNING)
     Route: 048
  4. CRESTOR [Concomitant]
     Active Substance: ROSUVASTATIN CALCIUM
     Indication: BLOOD CHOLESTEROL ABNORMAL
     Dosage: 1 DF, QD
     Route: 048

REACTIONS (7)
  - Facial paralysis [Recovering/Resolving]
  - Drug prescribing error [Unknown]
  - Ischaemic stroke [Recovered/Resolved with Sequelae]
  - Gait disturbance [Recovering/Resolving]
  - Head discomfort [Not Recovered/Not Resolved]
  - Memory impairment [Not Recovered/Not Resolved]
  - Pneumonia [Unknown]

NARRATIVE: CASE EVENT DATE: 20160129
